FAERS Safety Report 7342855-7 (Version None)
Quarter: 2011Q1

REPORT INFORMATION
  Report Type: 
  Country: None (occurrence: None)
  Receive Date: 20110228
  Receipt Date: 20110221
  Transmission Date: 20110831
  Serious: Yes (Other)
  Sender: FDA-Public Use
  Company Number: 2011SP006310

PATIENT
  Age: 23 Year
  Sex: Female
  Weight: 72 kg

DRUGS (1)
  1. NEXPLANON (ETONOGESTREL /01502301/) [Suspect]
     Indication: CONTRACEPTION
     Dosage: 68 MG; SBDE
     Route: 059

REACTIONS (4)
  - PYREXIA [None]
  - PAIN [None]
  - CELLULITIS [None]
  - ENDOMETRITIS [None]
